FAERS Safety Report 9848113 (Version 1)
Quarter: 2013Q4

REPORT INFORMATION
  Report Type: Spontaneous
  Country: US (occurrence: None)
  Receive Date: 20131224
  Receipt Date: 20131224
  Transmission Date: 20140711
  Serious: Yes (Death, Hospitalization)
  Sender: FDA-Public Use
  Company Number: PHEH2013US018429

PATIENT
  Sex: Female

DRUGS (2)
  1. AFINITOR (RAD) [Suspect]
     Indication: BREAST CANCER
     Route: 048
  2. EXEMESTANE (EXEMESTANE) [Concomitant]

REACTIONS (1)
  - Pneumonitis [None]
